FAERS Safety Report 15690501 (Version 2)
Quarter: 2019Q2

REPORT INFORMATION
  Report Type: Spontaneous
  Country: US (occurrence: US)
  Receive Date: 20181205
  Receipt Date: 20190606
  Transmission Date: 20190711
  Serious: Yes (Hospitalization, Other)
  Sender: FDA-Public Use
  Company Number: US-PTC THERAPEUTICS, INC.-US-2018PTC000995

PATIENT
  Age: 11 Year
  Sex: Male

DRUGS (2)
  1. EMFLAZA [Suspect]
     Active Substance: DEFLAZACORT
     Indication: DUCHENNE MUSCULAR DYSTROPHY
     Dosage: 24 MG, QD
     Route: 048
     Dates: start: 20170920
  2. EMFLAZA [Suspect]
     Active Substance: DEFLAZACORT
     Dosage: 24 MG, QD
     Route: 048
     Dates: start: 20170910

REACTIONS (3)
  - Fall [Unknown]
  - Hip fracture [Unknown]
  - Foot fracture [Unknown]

NARRATIVE: CASE EVENT DATE: 20180831
